FAERS Safety Report 4952627-6 (Version None)
Quarter: 2006Q1

REPORT INFORMATION
  Report Type: 
  Country: None (occurrence: None)
  Receive Date: 20060317
  Receipt Date: 20060308
  Transmission Date: 20060701
  Serious: Yes (Other)
  Sender: FDA-Public Use
  Company Number: HQWYE463415JUN04

PATIENT
  Age: 69 Year
  Sex: Male
  Weight: 81.6 kg

DRUGS (1)
  1. MYLOTARG [Suspect]
     Indication: ACUTE MYELOID LEUKAEMIA
     Dosage: INTRAVENOUS
     Route: 042
     Dates: start: 20040128, end: 20040128

REACTIONS (11)
  - ALANINE AMINOTRANSFERASE INCREASED [None]
  - ANGIOPATHY [None]
  - ASCITES [None]
  - ASPARTATE AMINOTRANSFERASE INCREASED [None]
  - BLOOD BILIRUBIN INCREASED [None]
  - GALLBLADDER DISORDER [None]
  - INFUSION RELATED REACTION [None]
  - LIVER DISORDER [None]
  - LIVER FUNCTION TEST ABNORMAL [None]
  - PYREXIA [None]
  - WEIGHT INCREASED [None]
